FAERS Safety Report 23029738 (Version 1)
Quarter: 2023Q4

REPORT INFORMATION
  Report Type: Spontaneous
  Country: US (occurrence: US)
  Receive Date: 20231004
  Receipt Date: 20231004
  Transmission Date: 20240110
  Serious: Yes (Other)
  Sender: FDA-Public Use
  Company Number: US-BRISTOL-MYERS SQUIBB COMPANY-2023-140605

PATIENT
  Age: 78 Year
  Sex: Female

DRUGS (1)
  1. ELIQUIS [Suspect]
     Active Substance: APIXABAN
     Indication: Atrial fibrillation
     Dosage: FREQUENCY: TAKE 1 TABLET BY MOUTH TWICE DAILY
     Route: 048

REACTIONS (3)
  - Upper limb fracture [Recovering/Resolving]
  - Rheumatoid arthritis [Unknown]
  - Hernia [Unknown]
